FAERS Safety Report 7674374-2 (Version None)
Quarter: 2011Q3

REPORT INFORMATION
  Report Type: 
  Country: None (occurrence: None)
  Receive Date: 20110810
  Receipt Date: 20110802
  Transmission Date: 20111222
  Serious: Yes (Disabling, Other)
  Sender: FDA-Public Use
  Company Number: DK-BAYER-200829072GPV

PATIENT
  Age: 56 Year
  Sex: Female

DRUGS (11)
  1. REMERON [Concomitant]
  2. KININ [Concomitant]
  3. LACTULOSE [Concomitant]
  4. HALOPERIDOL [Concomitant]
  5. MAGNEVIST [Suspect]
     Indication: NUCLEAR MAGNETIC RESONANCE IMAGING BRAIN
     Route: 014
     Dates: start: 20060626, end: 20060626
  6. CONTRAST MEDIA [Suspect]
     Indication: NUCLEAR MAGNETIC RESONANCE IMAGING
     Route: 065
     Dates: start: 20020719, end: 20020719
  7. EMPERAL [Concomitant]
     Route: 048
  8. OMNISCAN [Suspect]
     Indication: SCAN WITH CONTRAST
     Dosage: 0.5 MMOL/ML
     Route: 042
     Dates: start: 20020115, end: 20020115
  9. MAGNEVIST [Suspect]
     Indication: NUCLEAR MAGNETIC RESONANCE IMAGING
  10. OMNISCAN [Suspect]
  11. METOCLOPRAMIDE [Concomitant]

REACTIONS (9)
  - SKIN HYPERTROPHY [None]
  - PAIN OF SKIN [None]
  - ARTHRALGIA [None]
  - ONYCHOMYCOSIS [None]
  - ABDOMINAL PAIN [None]
  - ULCER [None]
  - NEPHROGENIC SYSTEMIC FIBROSIS [None]
  - MUSCLE ATROPHY [None]
  - OEDEMA PERIPHERAL [None]
